FAERS Safety Report 7680179-9 (Version None)
Quarter: 2011Q3

REPORT INFORMATION
  Report Type: 
  Country: None (occurrence: None)
  Receive Date: 20110812
  Receipt Date: 20110803
  Transmission Date: 20111222
  Serious: Yes (Other)
  Sender: FDA-Public Use
  Company Number: US-BAYER-2011-011802

PATIENT
  Age: 19 Year
  Sex: Female
  Weight: 49.887 kg

DRUGS (19)
  1. NAPROXEN SODIUM AND PSEUDOEPHEDRINE HYDROCHLORIDE [Concomitant]
     Dosage: UNK
     Dates: start: 20010101
  2. OMEPRAZOLE [Concomitant]
     Dosage: UNK
     Dates: start: 20010101
  3. PEG-3350 [Concomitant]
     Dosage: UNK
     Dates: start: 20010101
  4. SULFACETAMIDE SODIUM [Concomitant]
     Dosage: UNK
     Dates: start: 20010101
  5. AZITHROMYCIN [Concomitant]
     Dosage: UNK
     Dates: start: 20010101
  6. HYDROCODONE [Concomitant]
     Dosage: UNK
     Dates: start: 20010101
  7. HYDROCORTISONE/PRAMOXINE [Concomitant]
     Dosage: UNK
     Dates: start: 20010101
  8. NAPROXEN (ALEVE) [Concomitant]
     Dosage: UNK
     Dates: start: 20010101
  9. MOTRIN [Concomitant]
     Dosage: UNK
     Dates: start: 20010101
  10. OXYCODONE HCL [Concomitant]
     Dosage: UNK
     Dates: start: 20010101
  11. MEDROXYPROGESTERONE [Concomitant]
     Dosage: UNK
     Dates: start: 20010101
  12. PROAIR HFA [Concomitant]
     Dosage: UNK
     Dates: start: 20010101
  13. SUCRALFATE [Concomitant]
     Dosage: UNK
     Dates: start: 20010101
  14. IBUPROFEN [Concomitant]
     Dosage: UNK
     Dates: start: 20010101
  15. ADVIL LIQUI-GELS [Concomitant]
     Dosage: UNK
     Dates: start: 20010101
  16. PRILOSEC [Concomitant]
  17. YAZ [Suspect]
     Indication: ACNE
     Dosage: UNK
     Dates: start: 20060830, end: 20100106
  18. AMOXICILLIN [Concomitant]
     Dosage: UNK
     Dates: start: 20010101
  19. ACETAMINOPHEN W/ CODEINE [Concomitant]
     Dosage: UNK
     Dates: start: 20010101

REACTIONS (4)
  - ABDOMINAL PAIN UPPER [None]
  - CHOLELITHIASIS [None]
  - INJURY [None]
  - PAIN [None]
